FAERS Safety Report 7263478-4 (Version None)
Quarter: 2011Q1

REPORT INFORMATION
  Report Type: 
  Country: None (occurrence: None)
  Receive Date: 20110130
  Receipt Date: 20101203
  Transmission Date: 20110831
  Serious: No
  Sender: FDA-Public Use
  Company Number: US-ABBOTT-10P-163-0689389-00

PATIENT
  Sex: Female

DRUGS (10)
  1. HUMIRA [Suspect]
     Indication: ANKYLOSING SPONDYLITIS
     Route: 058
     Dates: start: 20101126
  2. ASACOL [Concomitant]
     Indication: CROHN'S DISEASE
  3. FLUTICASONE PROPIONATE [Concomitant]
     Indication: PRODUCT USED FOR UNKNOWN INDICATION
     Dosage: 50 MCG, 2 SPRAYS DAILY
     Route: 045
  4. TRAMADOL HCL [Concomitant]
     Indication: ARTHRITIS
  5. LYRICA [Concomitant]
     Indication: FIBROMYALGIA
  6. LIDODERM [Concomitant]
     Indication: ARTHRITIS
     Dosage: 1 PATCH AT BEDTIME
  7. CELEBREX [Concomitant]
     Indication: ARTHRITIS
  8. XYZAL [Concomitant]
     Indication: HYPERSENSITIVITY
  9. INTERCORT [Concomitant]
     Indication: CROHN'S DISEASE
  10. NEXIUM [Concomitant]
     Indication: GASTROOESOPHAGEAL REFLUX DISEASE

REACTIONS (1)
  - NASOPHARYNGITIS [None]
